FAERS Safety Report 8935859 (Version 2)
Quarter: 2012Q4

REPORT INFORMATION
  Report Type: 
  Country: FR (occurrence: FR)
  Receive Date: 20121130
  Receipt Date: 20121218
  Transmission Date: 20130627
  Serious: Yes (Other)
  Sender: FDA-Public Use
  Company Number: FR-009507513-1211FRA012733

PATIENT
  Sex: Male

DRUGS (6)
  1. JANUVIA [Suspect]
     Indication: TYPE 2 DIABETES MELLITUS
     Dosage: 100 mg, qd
     Route: 048
     Dates: start: 201011, end: 201209
  2. STAGID [Concomitant]
     Dosage: 700 mg, tid
  3. DIAMICRON [Concomitant]
     Dosage: 4 DF, qd
  4. VERAPAMIL [Concomitant]
  5. ATORVASTATIN [Concomitant]
     Dosage: 80 mg, UNK
  6. TRIATEC (RAMIPRIL) [Concomitant]
     Dosage: 2.5 mg, UNK

REACTIONS (1)
  - Autoimmune pancreatitis [Recovering/Resolving]
